FAERS Safety Report 5126198-8 (Version None)
Quarter: 2006Q3

REPORT INFORMATION
  Report Type: 
  Country: None (occurrence: None)
  Receive Date: 20060825
  Receipt Date: 20060206
  Transmission Date: 20061208
  Serious: Yes (Other)
  Sender: FDA-Public Use
  Company Number: US016812

PATIENT
  Age: 49 Year
  Sex: Female

DRUGS (2)
  1. GABITRIL [Suspect]
     Indication: INSOMNIA
     Dosage: 68 MG ONCE ORAL
     Route: 048
  2. LORAZEPAM [Concomitant]

REACTIONS (2)
  - CONVULSION [None]
  - OVERDOSE [None]
